FAERS Safety Report 5158562-5 (Version None)
Quarter: 2006Q4

REPORT INFORMATION
  Report Type: 
  Country: None (occurrence: None)
  Receive Date: 20061128
  Receipt Date: 20061117
  Transmission Date: 20070319
  Serious: Yes (Hospitalization)
  Sender: FDA-Public Use
  Company Number: GR-ROCHE-472001

PATIENT
  Age: 65 Year
  Sex: Female

DRUGS (4)
  1. BONIVA [Suspect]
     Indication: OSTEOPOROSIS
     Dosage: FORM REPORTED: F.C.TABS.
     Route: 048
     Dates: start: 20061105
  2. INDERAL [Concomitant]
     Dosage: REPORTED GENERIC: PROPRANOLOL HYDROCHLORIDE.
  3. ADALAT [Concomitant]
  4. ATACAND [Concomitant]

REACTIONS (7)
  - ABDOMINAL DISCOMFORT [None]
  - ABDOMINAL PAIN [None]
  - EPISTAXIS [None]
  - GASTRITIS [None]
  - INFLUENZA LIKE ILLNESS [None]
  - RECTAL HAEMORRHAGE [None]
  - VOMITING [None]
